FAERS Safety Report 17673943 (Version 2)
Quarter: 2021Q2

REPORT INFORMATION
  Report Type: Spontaneous
  Country: US (occurrence: US)
  Receive Date: 20200415
  Receipt Date: 20210625
  Transmission Date: 20210716
  Serious: Yes (Death, Other)
  Sender: FDA-Public Use
  Company Number: US-ASTRAZENECA-2020SE50844

PATIENT
  Age: 67 Year
  Sex: Female
  Weight: 73.9 kg

DRUGS (58)
  1. PROTONIX [Suspect]
     Active Substance: PANTOPRAZOLE SODIUM
     Indication: GASTROOESOPHAGEAL REFLUX DISEASE
     Route: 065
     Dates: start: 198910, end: 200912
  2. LISINOPRIL. [Concomitant]
     Active Substance: LISINOPRIL
     Indication: CARDIAC FAILURE
  3. HYDRALAZINE [Concomitant]
     Active Substance: HYDRALAZINE HYDROCHLORIDE
     Indication: BLOOD PRESSURE ABNORMAL
  4. CLOPIDOGREL [Concomitant]
     Active Substance: CLOPIDOGREL BISULFATE
     Indication: ANTICOAGULANT THERAPY
  5. CLONIDINE. [Concomitant]
     Active Substance: CLONIDINE
  6. AMOXICILLIN. [Concomitant]
     Active Substance: AMOXICILLIN
  7. PROPOXYPHENE. [Concomitant]
     Active Substance: PROPOXYPHENE
  8. PRILOSEC [Suspect]
     Active Substance: OMEPRAZOLE MAGNESIUM
     Indication: GASTROOESOPHAGEAL REFLUX DISEASE
     Route: 048
     Dates: start: 1989, end: 2000
  9. TUMS [Concomitant]
     Active Substance: CALCIUM CARBONATE
  10. ROPINIROLE. [Concomitant]
     Active Substance: ROPINIROLE
  11. DIPHENOXYLATE [Concomitant]
     Active Substance: DIPHENOXYLATE
  12. MUPIROCIN. [Concomitant]
     Active Substance: MUPIROCIN
  13. MECLIZINE [Concomitant]
     Active Substance: MECLIZINE HYDROCHLORIDE
  14. RENVELA [Concomitant]
     Active Substance: SEVELAMER CARBONATE
  15. COLACE [Concomitant]
     Active Substance: DOCUSATE SODIUM
  16. CRESTOR [Concomitant]
     Active Substance: ROSUVASTATIN CALCIUM
     Indication: BLOOD CHOLESTEROL ABNORMAL
  17. CLOPIDOGREL [Concomitant]
     Active Substance: CLOPIDOGREL BISULFATE
  18. ZOSTAVAX [Concomitant]
     Active Substance: VARICELLA-ZOSTER VIRUS STRAIN OKA/MERCK LIVE ANTIGEN
  19. GLIPIZIDE. [Concomitant]
     Active Substance: GLIPIZIDE
  20. EFFEXOR [Concomitant]
     Active Substance: VENLAFAXINE HYDROCHLORIDE
  21. PLAVIX [Concomitant]
     Active Substance: CLOPIDOGREL BISULFATE
     Indication: ANTICOAGULANT THERAPY
  22. CIPROFLOXACIN. [Concomitant]
     Active Substance: CIPROFLOXACIN
     Indication: INFECTION
  23. CHOLESTYRAMIN [Concomitant]
     Active Substance: CHOLESTYRAMINE
  24. PRILOSEC [Suspect]
     Active Substance: OMEPRAZOLE MAGNESIUM
     Indication: GASTROOESOPHAGEAL REFLUX DISEASE
     Route: 048
     Dates: start: 198910, end: 200912
  25. LISINOPRIL. [Concomitant]
     Active Substance: LISINOPRIL
     Indication: BLOOD PRESSURE ABNORMAL
  26. PEPCID [Concomitant]
     Active Substance: FAMOTIDINE
  27. PEPTO?BISMOL [Concomitant]
     Active Substance: BISMUTH SUBSALICYLATE
  28. SEROQUEL [Concomitant]
     Active Substance: QUETIAPINE FUMARATE
  29. HYDRALAZINE [Concomitant]
     Active Substance: HYDRALAZINE HYDROCHLORIDE
  30. METOLAZONE. [Concomitant]
     Active Substance: METOLAZONE
  31. AMITIZA [Concomitant]
     Active Substance: LUBIPROSTONE
  32. CLINDAMYCIN. [Concomitant]
     Active Substance: CLINDAMYCIN
  33. CARISOPRODOL. [Concomitant]
     Active Substance: CARISOPRODOL
  34. NEURONTIN [Concomitant]
     Active Substance: GABAPENTIN
  35. LYRICA [Concomitant]
     Active Substance: PREGABALIN
  36. TRAMADOL. [Concomitant]
     Active Substance: TRAMADOL
     Indication: PAIN
  37. FUROSEMIDE. [Concomitant]
     Active Substance: FUROSEMIDE
  38. DIALYVITE [Concomitant]
     Active Substance: ASCORBIC ACID\BIOTIN\CALCIUM PANTOTHENATE\COBALAMIN\FOLIC ACID\NIACINAMIDE\PYRIDOXINE HYDROCHLORIDE\RIBOFLAVIN\THIAMINE MONONITRATE
  39. QUETIAPINE. [Concomitant]
     Active Substance: QUETIAPINE
  40. BUPROPION. [Concomitant]
     Active Substance: BUPROPION
  41. PROTONIX [Suspect]
     Active Substance: PANTOPRAZOLE SODIUM
     Indication: GASTROOESOPHAGEAL REFLUX DISEASE
     Route: 065
     Dates: start: 2009, end: 2019
  42. FUROSEMIDE. [Concomitant]
     Active Substance: FUROSEMIDE
     Indication: OEDEMA
  43. ALLOPURINOL. [Concomitant]
     Active Substance: ALLOPURINOL
     Indication: GOUT
  44. MILK OF MAGNESIA [Concomitant]
     Active Substance: MAGNESIUM HYDROXIDE
  45. VENLAFAXINE [Concomitant]
     Active Substance: VENLAFAXINE HYDROCHLORIDE
  46. CEPHALEXIN. [Concomitant]
     Active Substance: CEPHALEXIN
  47. CIPRODEX [Concomitant]
     Active Substance: CIPROFLOXACIN HYDROCHLORIDE\DEXAMETHASONE
  48. PRILOSEC [Suspect]
     Active Substance: OMEPRAZOLE MAGNESIUM
     Indication: GASTROOESOPHAGEAL REFLUX DISEASE
     Dosage: GENERIC
     Route: 065
     Dates: start: 2010, end: 2019
  49. ALLOPURINOL. [Concomitant]
     Active Substance: ALLOPURINOL
     Indication: NEPHROLITHIASIS
  50. AMOXICILLIN. [Concomitant]
     Active Substance: AMOXICILLIN
     Indication: INFECTION
  51. METOPROLOL. [Concomitant]
     Active Substance: METOPROLOL
  52. LEVOTHYROXINE. [Concomitant]
     Active Substance: LEVOTHYROXINE
  53. ALLOPURINOL. [Concomitant]
     Active Substance: ALLOPURINOL
  54. NIACIN. [Concomitant]
     Active Substance: NIACIN
  55. ASPIRIN. [Concomitant]
     Active Substance: ASPIRIN
  56. HYDROCODONE [Concomitant]
     Active Substance: HYDROCODONE
  57. OXYCODONE [Concomitant]
     Active Substance: OXYCODONE
  58. KIONEX [Concomitant]
     Active Substance: SODIUM POLYSTYRENE SULFONATE

REACTIONS (3)
  - Chronic kidney disease-mineral and bone disorder [Unknown]
  - End stage renal disease [Fatal]
  - Chronic kidney disease [Unknown]

NARRATIVE: CASE EVENT DATE: 2009
